FAERS Safety Report 8290150-4 (Version None)
Quarter: 2012Q2

REPORT INFORMATION
  Report Type: 
  Country: None (occurrence: None)
  Receive Date: 20120417
  Receipt Date: 20120410
  Transmission Date: 20120825
  Serious: Yes (Hospitalization)
  Sender: FDA-Public Use
  Company Number: FR-ABBOTT-12P-056-0925274-00

PATIENT
  Sex: Male

DRUGS (2)
  1. LEUPROLIDE ACETATE [Suspect]
     Indication: PROSTATE CANCER
     Route: 050
     Dates: start: 20100401, end: 20110101
  2. CASODEX [Suspect]
     Indication: PROSTATE CANCER
     Route: 048
     Dates: start: 20100401, end: 20100601

REACTIONS (4)
  - DYSKINESIA [None]
  - COMA [None]
  - ENCEPHALITIS [None]
  - CEREBELLAR SYNDROME [None]
